FAERS Safety Report 5134638-3 (Version None)
Quarter: 2006Q4

REPORT INFORMATION
  Report Type: 
  Country: None (occurrence: None)
  Receive Date: 20061025
  Receipt Date: 20060913
  Transmission Date: 20070319
  Serious: Yes (Other)
  Sender: FDA-Public Use
  Company Number: AU-GLAXOSMITHKLINE-B0438352A

PATIENT
  Sex: Male

DRUGS (2)
  1. VENTOLIN [Suspect]
     Route: 055
  2. FLIXOTIDE [Concomitant]
     Dosage: 1PUFF TWICE PER DAY
     Route: 055

REACTIONS (2)
  - ASTHMA [None]
  - DRUG INEFFECTIVE [None]
